FAERS Safety Report 15223888 (Version 1)
Quarter: 2018Q3

REPORT INFORMATION
  Report Type: Spontaneous
  Country: US (occurrence: US)
  Receive Date: 20180705
  Receipt Date: 20180705
  Transmission Date: 20181010
  Serious: Yes (Death)
  Sender: FDA-Public Use
  Company Number: None

PATIENT
  Sex: Male

DRUGS (2)
  1. FORTEO [Suspect]
     Active Substance: TERIPARATIDE
     Indication: OSTEOPOROSIS
     Route: 058
     Dates: start: 201602
  2. FORTEO [Suspect]
     Active Substance: TERIPARATIDE
     Indication: OSTEOPETROSIS
     Route: 058
     Dates: start: 201602

REACTIONS (1)
  - Death [None]
